FAERS Safety Report 9836724 (Version 2)
Quarter: 2014Q1

REPORT INFORMATION
  Report Type: Report from Study
  Country: CL (occurrence: CL)
  Receive Date: 20140123
  Receipt Date: 20140123
  Transmission Date: 20141002
  Serious: Yes (Death, Hospitalization)
  Sender: FDA-Public Use
  Company Number: PHHY2013CL140465

PATIENT
  Sex: Male

DRUGS (3)
  1. GLIVEC [Suspect]
     Indication: GASTROINTESTINAL STROMAL TUMOUR
     Dosage: 400 MG, UNK
     Route: 048
     Dates: start: 20081029
  2. GLIVEC [Suspect]
     Dosage: 800 MG, UNK
     Route: 048
  3. GLIVEC [Suspect]
     Dosage: 400 MG, UNK
     Route: 048

REACTIONS (2)
  - Death [Fatal]
  - Vomiting [Unknown]
